FAERS Safety Report 4741275-9 (Version None)
Quarter: 2005Q3

REPORT INFORMATION
  Report Type: 
  Country: None (occurrence: None)
  Receive Date: 20050810
  Receipt Date: 20041222
  Transmission Date: 20060218
  Serious: No
  Sender: FDA-Public Use
  Company Number: US-GLAXOSMITHKLINE-A0538297A

PATIENT
  Age: 44 Year
  Sex: Female

DRUGS (2)
  1. PAXIL [Suspect]
     Indication: DEPRESSION
     Dosage: 40MG PER DAY
     Route: 048
     Dates: start: 20000101
  2. NO CONCURRENT MEDICATION [Concomitant]

REACTIONS (5)
  - ARTHRALGIA [None]
  - HYPERHIDROSIS [None]
  - HYPOAESTHESIA [None]
  - INSOMNIA [None]
  - OEDEMA PERIPHERAL [None]
